FAERS Safety Report 7646524-5 (Version None)
Quarter: 2011Q3

REPORT INFORMATION
  Report Type: 
  Country: None (occurrence: None)
  Receive Date: 20110801
  Receipt Date: 20110721
  Transmission Date: 20111222
  Serious: Yes (Life-Threatening, Other)
  Sender: FDA-Public Use
  Company Number: JP-JNJFOC-20110401790

PATIENT
  Sex: Female

DRUGS (14)
  1. LEVOFLOXACIN [Suspect]
     Indication: INFLAMMATION
     Route: 048
     Dates: start: 20110312, end: 20110314
  2. DIGOXIN [Concomitant]
     Indication: CARDIAC FAILURE CHRONIC
     Dosage: HALF DOSE
     Route: 065
     Dates: end: 20110314
  3. SOLITA T3 [Concomitant]
     Route: 065
  4. LEVOFLOXACIN [Suspect]
     Indication: PYREXIA
     Route: 048
     Dates: start: 20110312, end: 20110314
  5. HEPARIN [Concomitant]
     Indication: ATRIAL FIBRILLATION
     Route: 041
     Dates: start: 20110311, end: 20110328
  6. OMEPRAZOLE [Concomitant]
     Route: 065
  7. DIGOXIN [Concomitant]
     Route: 065
     Dates: start: 20110314
  8. CANDESARTAN CILEXETIL [Concomitant]
     Indication: CARDIAC FAILURE CHRONIC
     Dosage: HALF DOSE
     Route: 048
  9. ALOSITOL [Concomitant]
     Indication: HYPERURICAEMIA
     Dosage: HALF DOSE
     Route: 048
  10. ADALAT [Concomitant]
     Indication: HYPERTENSION
     Dosage: HALF DOSE
     Route: 048
  11. LASIX [Concomitant]
     Indication: CARDIAC FAILURE CHRONIC
     Route: 042
     Dates: start: 20110311, end: 20110316
  12. NITROL [Concomitant]
     Indication: CARDIAC FAILURE CHRONIC
     Route: 041
     Dates: start: 20110311, end: 20110317
  13. NEO-MERCAZOLE TAB [Concomitant]
     Indication: HYPERTHYROIDISM
     Route: 048
  14. RABEPRAZOLE SODIUM [Concomitant]
     Indication: GASTRITIS
     Route: 048

REACTIONS (3)
  - VENTRICULAR EXTRASYSTOLES [None]
  - TORSADE DE POINTES [None]
  - LOSS OF CONSCIOUSNESS [None]
